FAERS Safety Report 6084494-4 (Version None)
Quarter: 2009Q1

REPORT INFORMATION
  Report Type: 
  Country: None (occurrence: None)
  Receive Date: 20090219
  Receipt Date: 20090209
  Transmission Date: 20090719
  Serious: Yes (Hospitalization)
  Sender: FDA-Public Use
  Company Number: US-SANOFI-SYNTHELABO-A03200804727

PATIENT
  Sex: Female
  Weight: 59.9 kg

DRUGS (13)
  1. AMBIEN [Concomitant]
     Indication: SLEEP DISORDER
     Route: 048
  2. ELOXATIN [Suspect]
     Indication: COLORECTAL CANCER
     Route: 042
     Dates: start: 20081117, end: 20081117
  3. LEUCOVORIN CALCIUM [Concomitant]
     Indication: COLORECTAL CANCER
     Route: 042
     Dates: start: 20081117, end: 20081117
  4. DEPO-PROVERA [Concomitant]
     Indication: DRUG USE FOR UNKNOWN INDICATION
     Dosage: 1 INJECTION EVERY 12 WEEKS
     Route: 065
  5. SINGULAIR [Concomitant]
     Indication: DRUG USE FOR UNKNOWN INDICATION
     Route: 048
  6. ALLEGRA [Concomitant]
     Indication: DRUG USE FOR UNKNOWN INDICATION
     Route: 048
  7. FLUOROURACIL [Suspect]
     Indication: COLORECTAL CANCER
     Route: 042
     Dates: start: 20081117, end: 20081117
  8. NYSTAT-RX [Concomitant]
     Indication: DRUG USE FOR UNKNOWN INDICATION
     Dosage: APPLY TO AREA DAILY
     Route: 065
  9. PERCOCET [Concomitant]
     Indication: BREAKTHROUGH PAIN
     Dosage: 1 TABLET EVERY 6 HOURS AS NEEDED
     Route: 048
  10. OXYCONTIN [Concomitant]
     Indication: DRUG USE FOR UNKNOWN INDICATION
     Dosage: UNK
     Route: 065
  11. MULTI-VITAMINS [Concomitant]
     Indication: DRUG USE FOR UNKNOWN INDICATION
     Dosage: UNK
     Route: 065
  12. CALCIUM + VITAMIN D [Concomitant]
     Indication: DRUG USE FOR UNKNOWN INDICATION
     Route: 048
  13. ALBUTEROL [Concomitant]
     Indication: DRUG USE FOR UNKNOWN INDICATION
     Route: 055

REACTIONS (13)
  - ANXIETY [None]
  - BLOOD PRESSURE DECREASED [None]
  - CARDIAC FAILURE [None]
  - CHEST PAIN [None]
  - ENDOCARDITIS VIRAL [None]
  - HYPERHIDROSIS [None]
  - LETHARGY [None]
  - MALAISE [None]
  - MYOCARDITIS [None]
  - PALLOR [None]
  - SINUS TACHYCARDIA [None]
  - VENTRICULAR FIBRILLATION [None]
  - VOMITING [None]
